FAERS Safety Report 12388492 (Version 1)
Quarter: 2016Q2

REPORT INFORMATION
  Report Type: Spontaneous
  Country: US (occurrence: US)
  Receive Date: 20160520
  Receipt Date: 20160520
  Transmission Date: 20160815
  Serious: Yes (Other)
  Sender: FDA-Public Use
  Company Number: US-SHIRE-US201606115

PATIENT
  Age: 36 Year
  Sex: Female

DRUGS (2)
  1. CINRYZE [Suspect]
     Active Substance: HUMAN C1-ESTERASE INHIBITOR
     Indication: HEREDITARY ANGIOEDEMA
     Dosage: UNK, UNKNOWN
     Route: 042
  2. CINRYZE [Suspect]
     Active Substance: HUMAN C1-ESTERASE INHIBITOR
     Indication: PROPHYLAXIS

REACTIONS (9)
  - Hormone level abnormal [Unknown]
  - Blood pressure abnormal [Unknown]
  - Product quality issue [Unknown]
  - Hereditary angioedema [Unknown]
  - Pharyngitis streptococcal [Unknown]
  - Animal bite [Unknown]
  - Product use issue [Not Recovered/Not Resolved]
  - Laryngeal oedema [Unknown]
  - Heart rate abnormal [Unknown]

NARRATIVE: CASE EVENT DATE: 201604
